FAERS Safety Report 8227268-8 (Version None)
Quarter: 2012Q1

REPORT INFORMATION
  Report Type: 
  Country: None (occurrence: None)
  Receive Date: 20120322
  Receipt Date: 20120315
  Transmission Date: 20120608
  Serious: Yes (Other)
  Sender: FDA-Public Use
  Company Number: PHHY2010CA69390

PATIENT
  Sex: Female

DRUGS (2)
  1. SANDOSTATIN LAR [Suspect]
     Dosage: 20 MG EVERY 4 WEEKS
     Route: 030
  2. SANDOSTATIN LAR [Suspect]
     Indication: GASTROINTESTINAL ANGIODYSPLASIA
     Dosage: 20 MG, QMO
     Route: 030
     Dates: start: 20090101

REACTIONS (12)
  - ANGINA PECTORIS [None]
  - INFLUENZA [None]
  - CHILLS [None]
  - MYALGIA [None]
  - URINE OUTPUT DECREASED [None]
  - SLEEP DISORDER [None]
  - DIARRHOEA [None]
  - FATIGUE [None]
  - INSOMNIA [None]
  - RENAL FAILURE [None]
  - COUGH [None]
  - BLOOD PRESSURE DECREASED [None]
